FAERS Safety Report 6843894-2 (Version None)
Quarter: 2010Q3

REPORT INFORMATION
  Report Type: 
  Country: None (occurrence: None)
  Receive Date: 20100715
  Receipt Date: 20100705
  Transmission Date: 20110219
  Serious: Yes (Other)
  Sender: FDA-Public Use
  Company Number: JP-WATSON-2010-08913

PATIENT
  Age: 65 Year
  Sex: Male

DRUGS (3)
  1. RAPAFLO [Suspect]
     Indication: POLLAKIURIA
     Dosage: 4 MG, DAILY
     Route: 048
     Dates: start: 20100623, end: 20100623
  2. RAPAFLO [Suspect]
     Indication: BENIGN PROSTATIC HYPERPLASIA
  3. MOBIC [Concomitant]
     Indication: PRODUCT USED FOR UNKNOWN INDICATION
     Dosage: UNK
     Route: 048

REACTIONS (2)
  - DEHYDRATION [None]
  - DIARRHOEA [None]
